FAERS Safety Report 13141783 (Version 1)
Quarter: 2017Q1

REPORT INFORMATION
  Report Type: Spontaneous
  Country: GB (occurrence: GB)
  Receive Date: 20170123
  Receipt Date: 20170123
  Transmission Date: 20170428
  Serious: Yes (Hospitalization, Other)
  Sender: FDA-Public Use
  Company Number: GB-GLAXOSMITHKLINE-GB2017007425

PATIENT
  Age: 48 Year
  Sex: Female
  Weight: 138 kg

DRUGS (12)
  1. LOTRIDERM [Concomitant]
     Active Substance: BETAMETHASONE DIPROPIONATE\CLOTRIMAZOLE
     Dosage: FEET
     Dates: start: 20161111
  2. CO-AMOXICLAV [Concomitant]
     Active Substance: AMOXICILLIN\CLAVULANIC ACID
     Dosage: 1 DF, TID
     Dates: start: 20161021, end: 20161031
  3. FLUCLOXACILLIN [Concomitant]
     Active Substance: FLUCLOXACILLIN
     Dosage: 1 DF, QID
     Dates: start: 20161104
  4. OMEPRAZOLE. [Concomitant]
     Active Substance: OMEPRAZOLE
     Indication: GASTRIC DISORDER
     Dosage: TO REDUCE STOMACH ACID / PROTECT...
     Dates: start: 20160629
  5. ZEROCREAM [Concomitant]
     Dosage: AND WHEN REQUIRED AS A SKIN MOI...
     Dates: start: 20161213, end: 20170110
  6. E45 CREAM (SOFT PARAFFIN+LIQUID PARAFFIN+ANHYDROUS LANOLIN) [Concomitant]
     Dosage: APPLY
     Dates: start: 20161111, end: 20161112
  7. CLARITHROMYCIN. [Concomitant]
     Active Substance: CLARITHROMYCIN
     Dosage: 1 DF, UNK
     Dates: start: 20170103, end: 20170110
  8. GABAPENTIN. [Concomitant]
     Active Substance: GABAPENTIN
     Dosage: USE AS DIRECTED.
     Dates: start: 20170106
  9. CITALOPRAM [Concomitant]
     Active Substance: CITALOPRAM HYDROBROMIDE
     Dosage: 1 DF, QD
     Dates: start: 20120320
  10. MELOXICAM. [Concomitant]
     Active Substance: MELOXICAM
     Dosage: 1 DF, QD
     Dates: start: 20160629
  11. CODEINE PHOSPHATE [Concomitant]
     Active Substance: CODEINE PHOSPHATE
     Indication: PAIN
     Dosage: TAKE 1 OR TWO FOUR TIMES A DAY.
     Dates: start: 20161212, end: 20170109
  12. TERBINAFINE. [Suspect]
     Active Substance: TERBINAFINE
     Indication: PRODUCT USED FOR UNKNOWN INDICATION
     Dosage: UNK
     Route: 065
     Dates: start: 20170106

REACTIONS (1)
  - Anaphylactic reaction [Unknown]
